FAERS Safety Report 21743670 (Version 2)
Quarter: 2023Q1

REPORT INFORMATION
  Report Type: Report from Study
  Country: US (occurrence: US)
  Receive Date: 20221217
  Receipt Date: 20230313
  Transmission Date: 20230418
  Serious: No
  Sender: FDA-Public Use
  Company Number: US-ABBVIE-4194598

PATIENT
  Age: 61 Year
  Sex: Female

DRUGS (15)
  1. RINVOQ [Suspect]
     Active Substance: UPADACITINIB
     Indication: Colitis ulcerative
     Dosage: DISCONTINUED IN 2022
     Route: 048
     Dates: start: 20220718
  2. RINVOQ [Suspect]
     Active Substance: UPADACITINIB
     Indication: Colitis ulcerative
     Route: 048
     Dates: start: 2022, end: 20221118
  3. RINVOQ [Suspect]
     Active Substance: UPADACITINIB
     Indication: Colitis ulcerative
     Dosage: DISCONTINUED IN 2022 JUL
     Route: 048
     Dates: start: 20220710
  4. ASPIRIN [Concomitant]
     Active Substance: ASPIRIN
     Indication: Cardiovascular event prophylaxis
     Dosage: ASA-ENTERIC COATED C
     Dates: start: 20201001
  5. PROAIR HFA [Concomitant]
     Active Substance: ALBUTEROL SULFATE
     Indication: Asthma
  6. MELATONIN [Concomitant]
     Active Substance: MELATONIN
     Indication: Sleep disorder therapy
  7. PANTOPRAZOLE [Concomitant]
     Active Substance: PANTOPRAZOLE
     Indication: Gastrooesophageal reflux disease
     Dosage: FREQUENCY TEXT: 1 EACH DAY
     Dates: start: 20201001
  8. VALSARTAN [Concomitant]
     Active Substance: VALSARTAN
     Indication: Hypertension
     Route: 048
     Dates: start: 20211010
  9. Prasugre [Concomitant]
     Indication: Vascular device user
     Dates: start: 20201001
  10. MONTELUKAST CF [Concomitant]
     Indication: Asthma
     Dates: start: 20080101
  11. NITROSTAT [Concomitant]
     Active Substance: NITROGLYCERIN
     Indication: Cardiovascular event prophylaxis
     Dosage: 0.4MG
  12. atrovastin [Concomitant]
     Indication: Hyperlipidaemia
     Dosage: - FREQUENCY TEXT: 1 EACH DAY
     Dates: start: 20201001
  13. DIGESTIVE ADVANTAGE PROBIOTIC [Concomitant]
     Indication: Gastrointestinal disorder therapy
     Dosage: FREQUENCY TEXT: 2 DAILY
  14. FLUOXETINE HYDROCHLORIDE [Concomitant]
     Active Substance: FLUOXETINE HYDROCHLORIDE
     Indication: Anxiety
     Route: 048
  15. ALEVE [Concomitant]
     Active Substance: NAPROXEN SODIUM
     Indication: Arthritis

REACTIONS (2)
  - Constipation [Recovered/Resolved]
  - Hepatic enzyme increased [Unknown]

NARRATIVE: CASE EVENT DATE: 20220710
